FAERS Safety Report 22387094 (Version 2)
Quarter: 2023Q2

REPORT INFORMATION
  Report Type: Report from Study
  Country: CA (occurrence: CA)
  Receive Date: 20230531
  Receipt Date: 20230609
  Transmission Date: 20230722
  Serious: Yes (Hospitalization, Other)
  Sender: FDA-Public Use
  Company Number: CA-ABBVIE-5185383

PATIENT
  Sex: Male

DRUGS (1)
  1. SKYRIZI [Suspect]
     Active Substance: RISANKIZUMAB-RZAA
     Indication: Crohn^s disease
     Dosage: LAST ADMIN DATE : 2023
     Route: 042
     Dates: start: 20230309

REACTIONS (2)
  - Intestinal operation [Unknown]
  - Gastrointestinal lymphoma [Unknown]

NARRATIVE: CASE EVENT DATE: 20230101
